FAERS Safety Report 9241559 (Version 1)
Quarter: 2013Q2

REPORT INFORMATION
  Report Type: Spontaneous
  Country: US (occurrence: US)
  Receive Date: 20130419
  Receipt Date: 20130419
  Transmission Date: 20140414
  Serious: No
  Sender: FDA-Public Use
  Company Number: US-BAYER-2013-049435

PATIENT
  Age: 59 Year
  Sex: Female
  Weight: 74.38 kg

DRUGS (3)
  1. ALEVE TABLET [Suspect]
     Indication: ARTHRITIS
     Dosage: 1 DF, BID
     Route: 048
     Dates: start: 201208
  2. THYROXINE [Concomitant]
  3. ADVAIR [Concomitant]

REACTIONS (1)
  - Incorrect drug administration duration [None]
